FAERS Safety Report 19086923 (Version 1)
Quarter: 2021Q2

REPORT INFORMATION
  Report Type: Spontaneous
  Country: CN (occurrence: CN)
  Receive Date: 20210402
  Receipt Date: 20210402
  Transmission Date: 20210717
  Serious: Yes (Life-Threatening)
  Sender: FDA-Public Use
  Company Number: CN-ASTRAZENECA-2021A230633

PATIENT
  Age: 28855 Day
  Sex: Female
  Weight: 53 kg

DRUGS (1)
  1. FORXIGA [Suspect]
     Active Substance: DAPAGLIFLOZIN
     Indication: BLOOD GLUCOSE INCREASED
     Route: 048
     Dates: start: 20210307, end: 20210310

REACTIONS (1)
  - Diabetic ketoacidosis [Recovering/Resolving]

NARRATIVE: CASE EVENT DATE: 20210310
